FAERS Safety Report 24269101 (Version 2)
Quarter: 2024Q4

REPORT INFORMATION
  Report Type: Spontaneous
  Country: CN (occurrence: CN)
  Receive Date: 20240830
  Receipt Date: 20241030
  Transmission Date: 20250114
  Serious: Yes (Hospitalization)
  Sender: ELI LILLY AND COMPANY
  Company Number: CN-ELI_LILLY_AND_COMPANY-CN202408012668

PATIENT
  Age: 60 Year
  Sex: Female
  Weight: 61 kg

DRUGS (16)
  1. TALTZ [Suspect]
     Active Substance: IXEKIZUMAB
     Indication: Psoriasis
     Dosage: 160 MG, SINGLE (LOADING DOSE)
     Route: 058
     Dates: start: 20211031, end: 20211031
  2. TALTZ [Suspect]
     Active Substance: IXEKIZUMAB
     Indication: Psoriasis
     Dosage: 160 MG, SINGLE (LOADING DOSE)
     Route: 058
     Dates: start: 20211031, end: 20211031
  3. TALTZ [Suspect]
     Active Substance: IXEKIZUMAB
     Dosage: 80 MG, OTHER (EVERY TWO WEEKS)
     Route: 058
     Dates: start: 20211114
  4. TALTZ [Suspect]
     Active Substance: IXEKIZUMAB
     Dosage: 80 MG, OTHER (EVERY TWO WEEKS)
     Route: 058
     Dates: start: 20211114
  5. TALTZ [Suspect]
     Active Substance: IXEKIZUMAB
     Dosage: 80 MG, OTHER (EVERY TWO WEEKS)
     Route: 058
     Dates: start: 20211128
  6. TALTZ [Suspect]
     Active Substance: IXEKIZUMAB
     Dosage: 80 MG, OTHER (EVERY TWO WEEKS)
     Route: 058
     Dates: start: 20211128
  7. TALTZ [Suspect]
     Active Substance: IXEKIZUMAB
     Dosage: 80 MG, OTHER (EVERY FOUR WEEKS)
     Route: 058
     Dates: start: 20211226
  8. TALTZ [Suspect]
     Active Substance: IXEKIZUMAB
     Dosage: 80 MG, OTHER (EVERY FOUR WEEKS)
     Route: 058
     Dates: start: 20211226
  9. TALTZ [Suspect]
     Active Substance: IXEKIZUMAB
     Dosage: 80 MG, OTHER (EVERY FOUR WEEKS)
     Route: 058
     Dates: start: 20220123
  10. TALTZ [Suspect]
     Active Substance: IXEKIZUMAB
     Dosage: 80 MG, OTHER (EVERY FOUR WEEKS)
     Route: 058
     Dates: start: 20220123
  11. TALTZ [Suspect]
     Active Substance: IXEKIZUMAB
     Dosage: 160 MG, OTHER (INITIAL DOSE)
     Route: 058
     Dates: start: 20240109
  12. TALTZ [Suspect]
     Active Substance: IXEKIZUMAB
     Dosage: 160 MG, OTHER (INITIAL DOSE)
     Route: 058
     Dates: start: 20240109
  13. TALTZ [Suspect]
     Active Substance: IXEKIZUMAB
     Dosage: 80 MG, MONTHLY (1/M)
     Route: 058
     Dates: start: 20240124
  14. TALTZ [Suspect]
     Active Substance: IXEKIZUMAB
     Dosage: 80 MG, MONTHLY (1/M)
     Route: 058
     Dates: start: 20240124
  15. TALTZ [Suspect]
     Active Substance: IXEKIZUMAB
     Dosage: 160 MG, OTHER (INITIAL DOSE)
     Route: 058
     Dates: start: 20240816
  16. TALTZ [Suspect]
     Active Substance: IXEKIZUMAB
     Dosage: 160 MG, OTHER (INITIAL DOSE)
     Route: 058
     Dates: start: 20240816

REACTIONS (7)
  - Psoriasis [Recovered/Resolved]
  - Otitis media [Recovered/Resolved]
  - Product dose omission issue [Unknown]
  - Injection site pain [Recovered/Resolved]
  - Injection site pruritus [Recovered/Resolved]
  - Injection site swelling [Recovered/Resolved]
  - Injection site induration [Recovered/Resolved]

NARRATIVE: CASE EVENT DATE: 20240108
